FAERS Safety Report 24978945 (Version 1)
Quarter: 2025Q1

REPORT INFORMATION
  Report Type: Report from Study
  Country: CN (occurrence: CN)
  Receive Date: 20250218
  Receipt Date: 20250218
  Transmission Date: 20250408
  Serious: Yes (Death)
  Sender: ROCHE
  Company Number: CN-ROCHE-10000208876

PATIENT
  Age: 57 Year
  Sex: Male

DRUGS (1)
  1. COLUMVI [Suspect]
     Active Substance: GLOFITAMAB-GXBM
     Indication: Diffuse large B-cell lymphoma
     Route: 040
     Dates: start: 20241016

REACTIONS (1)
  - Disease progression [Fatal]
